FAERS Safety Report 8722003 (Version 2)
Quarter: 2012Q4

REPORT INFORMATION
  Report Type: 
  Country: US (occurrence: US)
  Receive Date: 20120814
  Receipt Date: 20121130
  Transmission Date: 20130627
  Serious: Yes (Hospitalization)
  Sender: FDA-Public Use
  Company Number: US-BAYER-2012-081196

PATIENT
  Age: 28 Year
  Sex: Female
  Weight: 97.05 kg

DRUGS (7)
  1. YAZ [Suspect]
     Indication: ACNE
     Dosage: UNK
     Dates: start: 20070829, end: 20090729
  2. NITROGLYCERIN [Concomitant]
     Indication: ANGINAL PAIN
  3. PHENTERMINE [Concomitant]
     Indication: WEIGHT LOSS
     Dosage: UNK
     Dates: start: 20090616, end: 20090813
  4. SIMVASTIN [Concomitant]
  5. TYLENOL #3 [Concomitant]
  6. CARDIZEM CD [Concomitant]
  7. LISINOPRIL [Concomitant]

REACTIONS (4)
  - Myocardial infarction [None]
  - Injury [None]
  - Pain [None]
  - Pain [None]
